FAERS Safety Report 11222021 (Version 1)
Quarter: 2015Q2

REPORT INFORMATION
  Report Type: Report from Study
  Country: IE (occurrence: IE)
  Receive Date: 20150626
  Receipt Date: 20150626
  Transmission Date: 20150821
  Serious: Yes (Hospitalization, Disabling)
  Sender: FDA-Public Use
  Company Number: IE-AMGEN-IRLSL2015061726

PATIENT
  Age: 85 Year
  Sex: Female

DRUGS (10)
  1. OMEPRAZOLE. [Concomitant]
     Active Substance: OMEPRAZOLE
     Dosage: 40 MG, QD
  2. ONE ALPHA [Concomitant]
     Active Substance: ALFACALCIDOL
     Dosage: 0.25 MUG, QD
  3. ELIQUIS [Concomitant]
     Active Substance: APIXABAN
     Dosage: 2.5 MG, QD
  4. ALDACTONE [Concomitant]
     Active Substance: SPIRONOLACTONE
     Dosage: 25 MG, QD
  5. NEBILET [Concomitant]
     Active Substance: NEBIVOLOL
     Dosage: 5 MG, QD
  6. ARANESP [Suspect]
     Active Substance: DARBEPOETIN ALFA
     Indication: CHRONIC KIDNEY DISEASE
     Dosage: 20 MUG, UNK
     Route: 058
     Dates: start: 20150106
  7. IDEOS [Concomitant]
     Active Substance: CALCIUM CARBONATE\CHOLECALCIFEROL
     Dosage: UNK UNK, BID
  8. TIPURIC [Concomitant]
     Dosage: 100 MG, QD
  9. FUROSEMIDE. [Concomitant]
     Active Substance: FUROSEMIDE
     Dosage: 40 MG, BID
  10. ELTROXIN [Concomitant]
     Active Substance: LEVOTHYROXINE
     Dosage: 125 MUG, QD

REACTIONS (2)
  - Localised infection [Recovering/Resolving]
  - Haemoglobin abnormal [Recovering/Resolving]
